FAERS Safety Report 17446874 (Version 1)
Quarter: 2020Q1

REPORT INFORMATION
  Report Type: Spontaneous
  Country: FI (occurrence: FI)
  Receive Date: 20200221
  Receipt Date: 20200221
  Transmission Date: 20200409
  Serious: Yes (Other)
  Sender: FDA-Public Use
  Company Number: FI-ABBVIE-20K-055-3281918-00

PATIENT
  Age: 40 Year
  Sex: Female

DRUGS (1)
  1. HUMIRA [Suspect]
     Active Substance: ADALIMUMAB
     Indication: PRODUCT USED FOR UNKNOWN INDICATION
     Route: 058
     Dates: start: 2008

REACTIONS (5)
  - Catheter site inflammation [Unknown]
  - Inflammatory bowel disease [Unknown]
  - Colectomy [Unknown]
  - Central venous catheterisation [Unknown]
  - Short-bowel syndrome [Unknown]
